FAERS Safety Report 17863696 (Version 1)
Quarter: 2020Q2

REPORT INFORMATION
  Report Type: Spontaneous
  Country: PT (occurrence: PT)
  Receive Date: 20200605
  Receipt Date: 20200605
  Transmission Date: 20200714
  Serious: Yes (Hospitalization, Other)
  Sender: FDA-Public Use
  Company Number: PT-TEVA-2020-PT-1244905

PATIENT
  Age: 74 Year
  Sex: Male

DRUGS (2)
  1. CLAVAMOXIN [Suspect]
     Active Substance: AMOXICILLIN\CLAVULANIC ACID
     Route: 048
  2. WARFARIN [Interacting]
     Active Substance: WARFARIN
     Indication: ANTICOAGULANT THERAPY
     Route: 048

REACTIONS (2)
  - Intra-abdominal haematoma [Recovered/Resolved]
  - Drug interaction [Unknown]
